FAERS Safety Report 14305617 (Version 1)
Quarter: 2017Q4

REPORT INFORMATION
  Report Type: Spontaneous
  Country: US (occurrence: US)
  Receive Date: 20171219
  Receipt Date: 20171219
  Transmission Date: 20180321
  Serious: Yes (Hospitalization, Other)
  Sender: FDA-Public Use
  Company Number: US-OTSUKA-2017_015258

PATIENT
  Sex: Female

DRUGS (10)
  1. ABILIFY [Suspect]
     Active Substance: ARIPIPRAZOLE
     Indication: BIPOLAR DISORDER
     Dosage: (START DATE: AUG-2010)
     Route: 065
  2. ABILIFY [Suspect]
     Active Substance: ARIPIPRAZOLE
     Indication: DEPRESSION
     Dosage: 10 MG, QD (START DATE: AUG-2010)
     Route: 048
     Dates: start: 2010
  3. KLONOPIN [Concomitant]
     Active Substance: CLONAZEPAM
     Indication: INSOMNIA
     Dosage: 0.5 ABSENT, QD
     Route: 048
     Dates: start: 2004
  4. METFORMIN [Concomitant]
     Active Substance: METFORMIN HYDROCHLORIDE
     Indication: DIABETES MELLITUS
     Dosage: 1000 ABSENT, QD
     Route: 065
     Dates: start: 2015
  5. CYMBALTA [Concomitant]
     Active Substance: DULOXETINE HYDROCHLORIDE
     Indication: PRODUCT USED FOR UNKNOWN INDICATION
     Dosage: 60 ABSENT, QD
     Route: 048
     Dates: start: 2010
  6. GLIPIZIDE. [Concomitant]
     Active Substance: GLIPIZIDE
     Indication: DIABETES MELLITUS
     Dosage: 10 ABSENT, QD
     Route: 065
     Dates: start: 2015
  7. CLONAZEPAM. [Concomitant]
     Active Substance: CLONAZEPAM
     Indication: INSOMNIA
     Dosage: 0.5 ABSENT, QD
     Route: 048
     Dates: start: 2004
  8. METFORMIN [Concomitant]
     Active Substance: METFORMIN HYDROCHLORIDE
     Indication: DIABETES MELLITUS
     Dosage: 1000 ABSENT, QD
     Route: 065
     Dates: start: 2015
  9. CYMBALTA [Concomitant]
     Active Substance: DULOXETINE HYDROCHLORIDE
     Indication: PRODUCT USED FOR UNKNOWN INDICATION
     Dosage: 60 ABSENT, QD
     Route: 048
     Dates: start: 2010
  10. GLIPIZIDE. [Concomitant]
     Active Substance: GLIPIZIDE
     Indication: DIABETES MELLITUS
     Dosage: 10 ABSENT, QD
     Route: 065
     Dates: start: 2015

REACTIONS (26)
  - Fractured coccyx [Unknown]
  - Arthropathy [Not Recovered/Not Resolved]
  - Neuropathy peripheral [Not Recovered/Not Resolved]
  - Prescribed underdose [Unknown]
  - Eye disorder [Unknown]
  - Limb injury [Not Recovered/Not Resolved]
  - Muscle spasms [Unknown]
  - Muscle tightness [Not Recovered/Not Resolved]
  - Diarrhoea [Unknown]
  - Somnolence [Recovered/Resolved]
  - Fall [Not Recovered/Not Resolved]
  - Dystonia [Recovering/Resolving]
  - Vomiting [Unknown]
  - Wound abscess [Unknown]
  - Urinary tract infection [Not Recovered/Not Resolved]
  - Cardiac failure congestive [Unknown]
  - Diabetes mellitus [Not Recovered/Not Resolved]
  - Joint dislocation [Not Recovered/Not Resolved]
  - Muscle twitching [Not Recovered/Not Resolved]
  - Fatigue [Recovered/Resolved]
  - Prescribed overdose [Unknown]
  - Abscess drainage [Unknown]
  - Weight bearing difficulty [Not Recovered/Not Resolved]
  - Retching [Unknown]
  - Weight decreased [Not Recovered/Not Resolved]
  - Dizziness [Unknown]

NARRATIVE: CASE EVENT DATE: 2010
